FAERS Safety Report 9316616 (Version 1)
Quarter: 2013Q2

REPORT INFORMATION
  Report Type: Spontaneous
  Country: US (occurrence: None)
  Receive Date: 20130524
  Receipt Date: 20130524
  Transmission Date: 20140414
  Serious: Yes (Other)
  Sender: FDA-Public Use
  Company Number: 2013050058

PATIENT
  Age: 12 Year
  Sex: Female
  Weight: 61.24 kg

DRUGS (4)
  1. DYMISTA [Suspect]
     Indication: RHINITIS SEASONAL
     Dosage: 4 DOSAGE FORMS (2 DOSAG FORMS, 2 IN 1D)
     Dates: start: 20130409, end: 20130412
  2. ZYRTEC (CETRIZINE) [Concomitant]
  3. AMITRIPTYLINE (AMITRIPTYLINE) [Concomitant]
  4. ELIDEL 1% CREAM (PIMECROLIMUS) [Concomitant]

REACTIONS (2)
  - Migraine [None]
  - Paraesthesia [None]
